FAERS Safety Report 6496172-8 (Version None)
Quarter: 2009Q4

REPORT INFORMATION
  Report Type: 
  Country: None (occurrence: None)
  Receive Date: 20091214
  Receipt Date: 20091012
  Transmission Date: 20100525
  Serious: No
  Sender: FDA-Public Use
  Company Number: US-BRISTOL-MYERS SQUIBB COMPANY-14815252

PATIENT
  Age: 45 Year
  Sex: Female
  Weight: 63 kg

DRUGS (2)
  1. ABILIFY [Suspect]
     Indication: SCHIZOPHRENIA
  2. LEXAPRO [Concomitant]

REACTIONS (1)
  - MUSCLE RIGIDITY [None]
